FAERS Safety Report 5511944-1 (Version None)
Quarter: 2007Q4

REPORT INFORMATION
  Report Type: 
  Country: None (occurrence: None)
  Receive Date: 20071109
  Receipt Date: 20071029
  Transmission Date: 20080405
  Serious: Yes (Other)
  Sender: FDA-Public Use
  Company Number: US-PFIZER INC-2007092072

PATIENT
  Sex: Female
  Weight: 65.3 kg

DRUGS (4)
  1. CHANTIX [Suspect]
     Indication: EX-SMOKER
     Dosage: FREQ:EVERY DAY
  2. PREDNISONE [Suspect]
     Indication: DERMATITIS CONTACT
  3. ERYTHROMYCIN [Suspect]
  4. ANTIBIOTICS [Suspect]
     Indication: SINUSITIS
     Dates: start: 20070917, end: 20070101

REACTIONS (11)
  - ABDOMINAL DISTENSION [None]
  - DYSURIA [None]
  - ERYTHEMA [None]
  - HYPERSENSITIVITY [None]
  - PAIN IN EXTREMITY [None]
  - PHARYNGEAL OEDEMA [None]
  - PRURITUS [None]
  - RASH [None]
  - SINUSITIS [None]
  - WEIGHT DECREASED [None]
  - WEIGHT INCREASED [None]
